FAERS Safety Report 7631804-X (Version None)
Quarter: 2011Q3

REPORT INFORMATION
  Report Type: 
  Country: None (occurrence: None)
  Receive Date: 20110725
  Receipt Date: 20110331
  Transmission Date: 20111222
  Serious: No
  Sender: FDA-Public Use
  Company Number: US-BRISTOL-MYERS SQUIBB COMPANY-15648041

PATIENT
  Sex: Male

DRUGS (3)
  1. DOXEPIN [Concomitant]
  2. COUMADIN [Suspect]
  3. COZAAR [Concomitant]

REACTIONS (2)
  - RHINORRHOEA [None]
  - EPISTAXIS [None]
